FAERS Safety Report 6721928-3 (Version None)
Quarter: 2010Q2

REPORT INFORMATION
  Report Type: 
  Country: None (occurrence: None)
  Receive Date: 20100512
  Receipt Date: 20100505
  Transmission Date: 20101027
  Serious: Yes (Hospitalization)
  Sender: FDA-Public Use
  Company Number: A0790491A

PATIENT
  Age: 67 Year
  Sex: Male

DRUGS (1)
  1. AVANDIA [Suspect]
     Indication: DIABETES MELLITUS
     Dosage: 2U TWICE PER DAY
     Route: 048
     Dates: start: 20040101, end: 20061201

REACTIONS (3)
  - CHEST PAIN [None]
  - INJURY [None]
  - SLEEP APNOEA SYNDROME [None]
